FAERS Safety Report 4918655-1 (Version None)
Quarter: 2006Q1

REPORT INFORMATION
  Report Type: 
  Country: None (occurrence: None)
  Receive Date: 20060222
  Receipt Date: 20051026
  Transmission Date: 20060701
  Serious: Yes (Other)
  Sender: FDA-Public Use
  Company Number: JP-AVENTIS-200513176JP

PATIENT
  Age: 60 Year
  Sex: Female

DRUGS (2)
  1. TAXOTERE [Suspect]
     Indication: BREAST CANCER
     Route: 041
     Dates: start: 20031001
  2. RADIATION THERAPY [Concomitant]
     Indication: BREAST CANCER
     Dosage: DOSE: 50 GY
     Dates: start: 20030701

REACTIONS (1)
  - CRYPTOGENIC ORGANIZING PNEUMONIA [None]
